FAERS Safety Report 24972336 (Version 1)
Quarter: 2025Q1

REPORT INFORMATION
  Report Type: Spontaneous
  Country: US (occurrence: None)
  Receive Date: 20250215
  Receipt Date: 20250215
  Transmission Date: 20250408
  Serious: Yes (Other)
  Sender: ALEXION PHARMACEUTICALS
  Company Number: US-AstraZeneca-2012SE85508

PATIENT
  Age: 45 Year

DRUGS (1)
  1. NEXIUM [Suspect]
     Active Substance: ESOMEPRAZOLE MAGNESIUM

REACTIONS (4)
  - Deafness unilateral [Unknown]
  - Nervous system disorder [Unknown]
  - Gastric ulcer [Unknown]
  - Intentional product misuse [Unknown]
